FAERS Safety Report 4512506-5 (Version None)
Quarter: 2004Q4

REPORT INFORMATION
  Report Type: 
  Country: None (occurrence: None)
  Receive Date: 20041124
  Receipt Date: 20041109
  Transmission Date: 20050328
  Serious: Yes (Hospitalization, Other)
  Sender: FDA-Public Use
  Company Number: USA040876074

PATIENT
  Age: 68 Year
  Sex: Female

DRUGS (11)
  1. FORTEO [Suspect]
     Indication: OSTEOPOROSIS
     Dosage: 20 UG DAY
     Dates: start: 20030506
  2. OXYGEN [Concomitant]
  3. SEREVENT DISKUS (SALMETEROL XINAFOATE) [Concomitant]
  4. PULMICORT [Concomitant]
  5. UNIPHYL [Concomitant]
  6. HYDROCHLOROTHIAZIDE [Concomitant]
  7. LEVOXYL [Concomitant]
  8. PAXIL [Concomitant]
  9. SINGULAIR (MONTELUKAST) [Concomitant]
  10. ARTHROTEC [Concomitant]
  11. CITRICAL (CALCIUM CARBONATE) [Concomitant]

REACTIONS (5)
  - DIFFICULTY IN WALKING [None]
  - FALL [None]
  - FRACTURE [None]
  - HIP FRACTURE [None]
  - PAIN IN EXTREMITY [None]
